FAERS Safety Report 9218270 (Version 1)
Quarter: 2013Q2

REPORT INFORMATION
  Report Type: Spontaneous
  Country: US (occurrence: US)
  Receive Date: 20130409
  Receipt Date: 20130409
  Transmission Date: 20140414
  Serious: Yes (Other)
  Sender: FDA-Public Use
  Company Number: US-AMGEN-USASP2013023835

PATIENT
  Age: 57 Year
  Sex: Male
  Weight: 114.29 kg

DRUGS (12)
  1. ENBREL [Suspect]
     Indication: PRODUCT USED FOR UNKNOWN INDICATION
     Dosage: 50 MG, 2 TIMES/WK
     Route: 058
  2. TORSEMIDE [Concomitant]
     Dosage: 20 MG, UNK
  3. AMLODIPINE [Concomitant]
     Dosage: 10 MG, UNK
  4. LEFLUNOMIDE [Concomitant]
     Dosage: 20 MG, UNK
  5. TRIAMCINOLON                       /00031901/ [Concomitant]
     Dosage: UNK
  6. CLOBETASOL 0.05% [Concomitant]
     Dosage: UNK
  7. VALTREX [Concomitant]
     Dosage: 1 G, UNK
  8. DOCUSATE [Concomitant]
     Dosage: 250 MG, UNK
  9. ZANTAC 75 DISSOLVE [Concomitant]
     Dosage: UNK
  10. ULORIC [Concomitant]
     Dosage: 40 MG, UNK
  11. VITAMIN B6 [Concomitant]
     Dosage: 50 MG, UNK
  12. OMEGA 3                            /01334101/ [Concomitant]
     Dosage: 1000 MG, UNK

REACTIONS (1)
  - Cardiac failure congestive [Unknown]
